FAERS Safety Report 14995382 (Version 1)
Quarter: 2018Q2

REPORT INFORMATION
  Report Type: Spontaneous
  Country: US (occurrence: US)
  Receive Date: 20180611
  Receipt Date: 20180611
  Transmission Date: 20180711
  Serious: No
  Sender: FDA-Public Use
  Company Number: US-SA-2018SA146985

PATIENT
  Sex: Female

DRUGS (1)
  1. KETEK [Suspect]
     Active Substance: TELITHROMYCIN

REACTIONS (1)
  - Diarrhoea [Unknown]
